FAERS Safety Report 9785495 (Version 1)
Quarter: 2013Q4

REPORT INFORMATION
  Report Type: Spontaneous
  Country: DK (occurrence: None)
  Receive Date: 20131224
  Receipt Date: 20131224
  Transmission Date: 20140711
  Serious: Yes (Hospitalization)
  Sender: FDA-Public Use
  Company Number: ABR_01352_2013

PATIENT
  Age: 81 Year
  Sex: Female

DRUGS (13)
  1. ABBOTICIN /00020902/ (ABBOTICIN -ERYTHROMYCIN STEARATE) 500 MG (NOT SPECIFIED) [Suspect]
     Indication: INFECTION
     Route: 048
     Dates: start: 20130903, end: 20130908
  2. TRADOLAN [Suspect]
     Indication: PAIN
     Route: 048
     Dates: start: 20131016
  3. MAREVAN [Suspect]
     Indication: ATRIAL FIBRILLATION
  4. TRANDOLAPRIL [Concomitant]
  5. ALENDRONAT [Concomitant]
  6. DIGOXIN [Concomitant]
  7. KESTIN [Concomitant]
  8. FURIX [Concomitant]
  9. PINEX /00020001/ [Concomitant]
  10. SPIRIVA [Concomitant]
  11. SPIROCORT [Concomitant]
  12. OXIS [Concomitant]
  13. BRICANYL [Concomitant]

REACTIONS (1)
  - Unevaluable event [None]
